FAERS Safety Report 9836894 (Version 1)
Quarter: 2013Q4

REPORT INFORMATION
  Report Type: Spontaneous
  Country: US (occurrence: None)
  Receive Date: 20131127
  Receipt Date: 20131127
  Transmission Date: 20140711
  Serious: No
  Sender: FDA-Public Use
  Company Number: 223225

PATIENT
  Age: 58 Year
  Sex: Female

DRUGS (1)
  1. PICATO [Suspect]
     Dosage: ON FACE
     Dates: start: 20130811, end: 20130812

REACTIONS (5)
  - Application site vesicles [None]
  - Application site reaction [None]
  - Application site erosion [None]
  - Application site erythema [None]
  - Incorrect drug administration duration [None]
